FAERS Safety Report 20623196 (Version 1)
Quarter: 2022Q1

REPORT INFORMATION
  Report Type: Spontaneous
  Country: JP (occurrence: None)
  Receive Date: 20220322
  Receipt Date: 20220322
  Transmission Date: 20220423
  Serious: Yes (Disabling, Other)
  Sender: FDA-Public Use
  Company Number: 2022A077465

PATIENT
  Age: 72 Year
  Sex: Male
  Weight: 63 kg

DRUGS (7)
  1. DAPAGLIFLOZIN [Suspect]
     Active Substance: DAPAGLIFLOZIN
     Indication: Chronic kidney disease
     Route: 048
     Dates: start: 20211025, end: 20220210
  2. SIMVASTATIN [Suspect]
     Active Substance: SIMVASTATIN
     Route: 048
  3. VILDAGLIPTIN [Suspect]
     Active Substance: VILDAGLIPTIN
     Route: 048
     Dates: start: 20130222, end: 20211020
  4. IRBESARTAN [Suspect]
     Active Substance: IRBESARTAN
     Route: 048
  5. IRBESARTAN [Suspect]
     Active Substance: IRBESARTAN
     Route: 048
  6. AMARYL [Suspect]
     Active Substance: GLIMEPIRIDE
     Route: 048
     Dates: start: 20120919, end: 20211025
  7. SITAGLIPTIN [Suspect]
     Active Substance: SITAGLIPTIN
     Dosage: DOSE UNKNOWN
     Route: 048
     Dates: start: 20211025, end: 20220210

REACTIONS (4)
  - Diabetes mellitus [Unknown]
  - Renal failure [Unknown]
  - Hyperkalaemia [Unknown]
  - Dehydration [Recovering/Resolving]

NARRATIVE: CASE EVENT DATE: 20211101
